FAERS Safety Report 14881007 (Version 1)
Quarter: 2018Q2

REPORT INFORMATION
  Report Type: Spontaneous
  Country: US (occurrence: US)
  Receive Date: 20180511
  Receipt Date: 20180511
  Transmission Date: 20180711
  Serious: No
  Sender: FDA-Public Use
  Company Number: US-TEVA-2018-US-891393

PATIENT
  Sex: Female

DRUGS (2)
  1. WARFARIN [Suspect]
     Active Substance: WARFARIN
     Dosage: 2.5 YEARS
     Route: 065
  2. WARFARIN [Suspect]
     Active Substance: WARFARIN

REACTIONS (2)
  - Insomnia [Unknown]
  - Alopecia [Unknown]
